FAERS Safety Report 7603091 (Version 3)
Quarter: 2013Q1

REPORT INFORMATION
  Report Type: Spontaneous
  Country: US (occurrence: US)
  Receive Date: 20100923
  Receipt Date: 20130225
  Transmission Date: 20140127
  Serious: Yes (Death)
  Sender: FDA-Public Use
  Company Number: US-BAYER-201034343NA

PATIENT
  Age: 19 Year
  Sex: Female
  Weight: 115.65 kg

DRUGS (7)
  1. OCELLA [Suspect]
     Dosage: UNK UNK, UNK
     Route: 048
     Dates: start: 200908, end: 20100421
  2. YAZ [Suspect]
  3. IBUPROFEN [Concomitant]
     Indication: PAIN
     Dosage: 800 MG, QID
     Route: 048
     Dates: start: 200902
  4. METFORMIN [Concomitant]
     Dosage: 500 MG, BID
     Route: 048
     Dates: start: 200902, end: 2010
  5. CYCLOBENZAPRINE [Concomitant]
     Indication: MUSCLE SPASMS
     Dosage: 10 MG, QID
     Route: 048
     Dates: start: 200906
  6. ADVIL [Concomitant]
  7. MOTRIN [Concomitant]
     Indication: PAIN

REACTIONS (2)
  - Pulmonary embolism [Fatal]
  - Deep vein thrombosis [Fatal]
